FAERS Safety Report 23071130 (Version 3)
Quarter: 2024Q1

REPORT INFORMATION
  Report Type: Report from Study
  Country: CA (occurrence: CA)
  Receive Date: 20231016
  Receipt Date: 20240122
  Transmission Date: 20240409
  Serious: Yes (Hospitalization)
  Sender: FDA-Public Use
  Company Number: CA-VER-202300428

PATIENT
  Age: 73 Year
  Sex: Male

DRUGS (4)
  1. TRIPTORELIN PAMOATE [Suspect]
     Active Substance: TRIPTORELIN PAMOATE
     Indication: Prostate cancer
     Dosage: 11.25 MILLIGRAM, ONCE / 3 MONTHS (11.25 MG,3 M)
     Route: 030
     Dates: start: 20230329, end: 20230329
  2. TRIPTORELIN PAMOATE [Suspect]
     Active Substance: TRIPTORELIN PAMOATE
     Indication: Prostate cancer
     Dosage: 11.25 MILLIGRAM, ONCE / 3 MONTHS (11.25 MG,3 M)
     Route: 030
     Dates: start: 20230628, end: 20230628
  3. TRIPTORELIN PAMOATE [Suspect]
     Active Substance: TRIPTORELIN PAMOATE
     Indication: Prostate cancer
     Dosage: ONCE / 3 MONTHS (11.25 MG,3 M)
     Route: 030
     Dates: start: 20230928, end: 20230928
  4. TRIPTORELIN PAMOATE [Suspect]
     Active Substance: TRIPTORELIN PAMOATE
     Indication: Prostate cancer
     Dosage: ONCE / 3 MONTHS (11.25 MG,3 M)
     Route: 030
     Dates: start: 20240109, end: 20240109

REACTIONS (9)
  - Device delivery system issue [Unknown]
  - Inappropriate schedule of product administration [Recovered/Resolved]
  - Hot flush [Unknown]
  - Hyperhidrosis [Unknown]
  - Arthralgia [Not Recovered/Not Resolved]
  - Myalgia [Unknown]
  - Muscle spasms [Unknown]
  - Urinary tract infection [Unknown]
  - Device occlusion [Unknown]
